FAERS Safety Report 4483831-1 (Version None)
Quarter: 2004Q4

REPORT INFORMATION
  Report Type: 
  Country: None (occurrence: None)
  Receive Date: 20041025
  Receipt Date: 20041013
  Transmission Date: 20050328
  Serious: Yes (Hospitalization)
  Sender: FDA-Public Use
  Company Number: FR-BRISTOL-MYERS SQUIBB COMPANY-12731253

PATIENT
  Age: 33 Year
  Sex: Male

DRUGS (3)
  1. VIDEX [Suspect]
     Indication: HIV INFECTION
     Route: 048
     Dates: start: 20030901, end: 20031119
  2. ZIAGEN [Concomitant]
     Indication: HIV INFECTION
     Dates: start: 20030901
  3. KALETRA [Concomitant]
     Indication: HIV INFECTION
     Dates: start: 20030901

REACTIONS (1)
  - PANCREATITIS ACUTE [None]
